FAERS Safety Report 6110296-6 (Version None)
Quarter: 2009Q1

REPORT INFORMATION
  Report Type: 
  Country: None (occurrence: None)
  Receive Date: 20090310
  Receipt Date: 20090225
  Transmission Date: 20090719
  Serious: Yes (Death, Hospitalization)
  Sender: FDA-Public Use
  Company Number: JP-BRISTOL-MYERS SQUIBB COMPANY-14485262

PATIENT
  Age: 74 Year
  Sex: Female

DRUGS (2)
  1. ERBITUX [Suspect]
     Indication: COLON CANCER
     Dosage: 57.1429 (400MG/M2 1 IN 1 WK)
     Route: 042
     Dates: start: 20081218
  2. IRINOTECAN HCL [Concomitant]
     Route: 042
     Dates: start: 20081218

REACTIONS (2)
  - ALTERED STATE OF CONSCIOUSNESS [None]
  - COMA [None]
